FAERS Safety Report 17354251 (Version 1)
Quarter: 2020Q1

REPORT INFORMATION
  Report Type: Spontaneous
  Country: US (occurrence: US)
  Receive Date: 20200130
  Receipt Date: 20200130
  Transmission Date: 20200409
  Serious: No
  Sender: FDA-Public Use
  Company Number: None

PATIENT
  Age: 76 Year
  Sex: Female
  Weight: 81.9 kg

DRUGS (3)
  1. ORBACTIV [Suspect]
     Active Substance: ORITAVANCIN
     Indication: WOUND INFECTION
     Dosage: ?          OTHER FREQUENCY:WEEKLY X 4 WEEKS;?
     Route: 041
     Dates: start: 20200128, end: 20200128
  2. ORBACTIV 1200MG [Concomitant]
     Dates: start: 20200128, end: 20200128
  3. ORBACTIV [Suspect]
     Active Substance: ORITAVANCIN
     Indication: LOCALISED INFECTION
     Dosage: ?          OTHER FREQUENCY:WEEKLY X 4 WEEKS;?
     Route: 041
     Dates: start: 20200128, end: 20200128

REACTIONS (2)
  - Eye haemorrhage [None]
  - Infusion related reaction [None]

NARRATIVE: CASE EVENT DATE: 20200128
